FAERS Safety Report 23097432 (Version 1)
Quarter: 2023Q4

REPORT INFORMATION
  Report Type: Spontaneous
  Country: US (occurrence: US)
  Receive Date: 20231023
  Receipt Date: 20231023
  Transmission Date: 20240110
  Serious: Yes (Death, Hospitalization, Other)
  Sender: FDA-Public Use
  Company Number: US-ALEMBIC PHARMACUETICALS LIMITED-2023SCAL000925

PATIENT

DRUGS (1)
  1. NITROFURANTOIN [Suspect]
     Active Substance: NITROFURANTOIN
     Indication: Prophylaxis urinary tract infection
     Dosage: 100 MG, QD FOR TWO MONTHS
     Route: 065

REACTIONS (13)
  - Acute respiratory distress syndrome [Fatal]
  - Pulmonary hypertension [Fatal]
  - Pyrexia [Fatal]
  - Dyspnoea exertional [Fatal]
  - Atelectasis [Fatal]
  - Oxygen saturation decreased [Fatal]
  - Respiratory failure [Fatal]
  - Right ventricular enlargement [Fatal]
  - Lung opacity [Fatal]
  - Bronchiectasis [Fatal]
  - Encephalopathy [Fatal]
  - Pulmonary toxicity [Fatal]
  - Interstitial lung disease [Fatal]
